FAERS Safety Report 14375594 (Version 2)
Quarter: 2018Q1

REPORT INFORMATION
  Report Type: Report from Study
  Country: CA (occurrence: CA)
  Receive Date: 20180111
  Receipt Date: 20180206
  Transmission Date: 20180509
  Serious: Yes (Other)
  Sender: FDA-Public Use
  Company Number: CA-ROCHE-2051840

PATIENT
  Age: 65 Year
  Sex: Male
  Weight: 104 kg

DRUGS (13)
  1. HYDROCHLOROTHIAZIDE/VALSARTAN [Concomitant]
     Active Substance: HYDROCHLOROTHIAZIDE\VALSARTAN
     Indication: HYPERTENSION
     Route: 048
     Dates: start: 2009
  2. AMLODIPINE [Concomitant]
     Active Substance: AMLODIPINE BESYLATE
     Indication: HYPERTENSION
     Route: 065
     Dates: start: 20171027
  3. TARO-DICLOFENAC [Concomitant]
     Indication: ARTHRITIS
     Dosage: 1.5 OTHER
     Route: 061
     Dates: start: 20170629
  4. TIMOLOL/TRAVOPROST [Concomitant]
     Indication: GLAUCOMA
     Route: 061
     Dates: start: 201704
  5. CITALOPRAM [Concomitant]
     Active Substance: CITALOPRAM HYDROBROMIDE
     Indication: DEPRESSION
     Route: 048
     Dates: start: 1991
  6. CLINDAMYCIN. [Concomitant]
     Active Substance: CLINDAMYCIN
     Indication: DERMATITIS ACNEIFORM
     Route: 065
     Dates: start: 20171030
  7. PANTOPRAZOLE [Concomitant]
     Active Substance: PANTOPRAZOLE
     Indication: GASTROOESOPHAGEAL REFLUX DISEASE
     Route: 048
     Dates: start: 20170629
  8. NAPROXEN. [Concomitant]
     Active Substance: NAPROXEN
     Indication: HEADACHE
     Route: 065
     Dates: start: 201712
  9. ASPIRIN. [Concomitant]
     Active Substance: ASPIRIN
     Indication: PROPHYLAXIS
     Route: 048
     Dates: start: 2009
  10. COBIMETINIB. [Suspect]
     Active Substance: COBIMETINIB
     Indication: MALIGNANT MELANOMA
     Dosage: DATE OF MOST RECENT DOSE (40 MG) OF COBIMETINIB PRIOR TO SAE ONSET: 27/DEC/2017?60 MG (THREE, 20 MG
     Route: 048
     Dates: start: 20171012
  11. LOPERAMIDE [Concomitant]
     Active Substance: LOPERAMIDE
     Indication: DIARRHOEA
     Route: 048
     Dates: start: 20171014
  12. ATEZOLIZUMAB. [Suspect]
     Active Substance: ATEZOLIZUMAB
     Indication: MALIGNANT MELANOMA
     Dosage: DATE OF MOST RECENT DOSE OF ATEZOLIZUMAB PRIOR TO SAE ONSET: 22/DEC/2017?FORM STRENGTH: 1200MG/20ML
     Route: 042
     Dates: start: 20171108
  13. VEMURAFENIB. [Suspect]
     Active Substance: VEMURAFENIB
     Indication: MALIGNANT MELANOMA
     Dosage: TOTAL NUMBER OF TABLETS OF LAST VEMURAFENIB ADMINISTERED PRIOR TO SAE ONSET: 3?DATE OF MOST RECENT D
     Route: 048
     Dates: start: 20171012

REACTIONS (1)
  - Meningitis aseptic [Unknown]

NARRATIVE: CASE EVENT DATE: 20180104
